FAERS Safety Report 5638926-3 (Version None)
Quarter: 2008Q1

REPORT INFORMATION
  Report Type: 
  Country: None (occurrence: None)
  Receive Date: 20080225
  Receipt Date: 20080225
  Transmission Date: 20080703
  Serious: Yes (Other)
  Sender: FDA-Public Use
  Company Number: None

PATIENT
  Age: 54 Year
  Sex: Female
  Weight: 77.1115 kg

DRUGS (1)
  1. CHANTIX [Suspect]
     Indication: SMOKING CESSATION THERAPY
     Dates: start: 20070305, end: 20070410

REACTIONS (4)
  - ABNORMAL BEHAVIOUR [None]
  - BURNOUT SYNDROME [None]
  - SUICIDAL IDEATION [None]
  - THINKING ABNORMAL [None]
